FAERS Safety Report 13940996 (Version 4)
Quarter: 2018Q1

REPORT INFORMATION
  Report Type: Spontaneous
  Country: FR (occurrence: FR)
  Receive Date: 20170906
  Receipt Date: 20180302
  Transmission Date: 20180508
  Serious: Yes (Hospitalization)
  Sender: FDA-Public Use
  Company Number: FR-PFIZER INC-2017381407

PATIENT
  Age: 60 Year
  Sex: Male
  Weight: 72 kg

DRUGS (19)
  1. FOSCAVIR [Suspect]
     Active Substance: FOSCARNET SODIUM
     Indication: ANTIVIRAL PROPHYLAXIS
     Dosage: 6 G, DAILY
     Route: 042
     Dates: start: 20170731, end: 20170816
  2. NEORAL [Concomitant]
     Active Substance: CYCLOSPORINE
     Indication: PROPHYLAXIS AGAINST TRANSPLANT REJECTION
     Dosage: 120 MG, 2X/DAY
     Dates: start: 20170301, end: 20170815
  3. NEORAL [Concomitant]
     Active Substance: CYCLOSPORINE
     Dosage: 100 MG, 2X/DAY MORNING AND EVENING
     Dates: start: 20170815, end: 20170817
  4. CORTANCYL [Concomitant]
     Active Substance: PREDNISONE
     Indication: PROPHYLAXIS AGAINST TRANSPLANT REJECTION
     Dosage: 40 MG, 1X/DAY MORNING
     Dates: start: 20170301, end: 20170813
  5. MIKICORT [Concomitant]
     Active Substance: BUDESONIDE
     Dosage: 3 MG, DAILY
     Dates: start: 20170819
  6. ROVALCYTE [Concomitant]
     Active Substance: VALGANCICLOVIR HYDROCHLORIDE
     Dosage: UNK
     Dates: start: 201703, end: 20170731
  7. HYDROCORTISONE UPJOHN [Suspect]
     Active Substance: HYDROCORTISONE
     Indication: PROPHYLAXIS AGAINST TRANSPLANT REJECTION
     Dosage: 120 MG, 1X/DAY
     Route: 042
     Dates: start: 20170814, end: 20170816
  8. NEURONTIN [Suspect]
     Active Substance: GABAPENTIN
     Dosage: 600 MG, 1X/DAY
     Route: 048
     Dates: start: 20170301, end: 20170818
  9. ORACILLINE /00001805/ [Concomitant]
     Active Substance: PENICILLIN V BENZATHINE
     Indication: PROPHYLAXIS
     Dosage: 1 MILLION IU, 2X/DAY MORNING AND EVENING
     Dates: start: 20170301, end: 20170813
  10. CORTANCYL [Concomitant]
     Active Substance: PREDNISONE
     Dosage: 10 MG, DAILY
     Dates: start: 20170814, end: 20170816
  11. CHOLURSO [Concomitant]
     Active Substance: URSODIOL
     Dosage: 500 MG, 2X/DAY MORNING AND EVENING
     Dates: start: 20170301
  12. SOLU-MEDROL [Concomitant]
     Active Substance: METHYLPREDNISOLONE SODIUM SUCCINATE
     Dosage: UNK
  13. MIKICORT [Concomitant]
     Active Substance: BUDESONIDE
     Indication: PROPHYLAXIS
     Dosage: 6 MG, 1X/DAY MORNING
     Dates: start: 20170301
  14. LAROXYL [Concomitant]
     Active Substance: AMITRIPTYLINE HYDROCHLORIDE
     Dosage: 15 GTT, 1X/DAY (4% / 20 ML) EVENING
     Dates: start: 20170301
  15. PANTOPRAZOLE [Concomitant]
     Active Substance: PANTOPRAZOLE
     Indication: GASTRITIS PROPHYLAXIS
     Dosage: 40 MG, 2X/DAY MORNING AND EVENING
     Dates: start: 20170301, end: 20170817
  16. WELLVONE [Concomitant]
     Active Substance: ATOVAQUONE
     Indication: PROPHYLAXIS
     Dosage: 5 ML, 2X/DAY MORNING AND EVENING
     Dates: start: 201703
  17. NOXAFIL [Concomitant]
     Active Substance: POSACONAZOLE
     Indication: PROPHYLAXIS
     Dosage: 300 MG, 1X/DAY MORNING
     Dates: start: 20170301, end: 20170817
  18. NOVORAPID [Concomitant]
     Active Substance: INSULIN ASPART
     Indication: PROPHYLAXIS
     Dosage: UNK
     Dates: start: 201703
  19. LANTUS [Concomitant]
     Active Substance: INSULIN GLARGINE
     Indication: PROPHYLAXIS
     Dosage: UNK
     Dates: start: 201703

REACTIONS (2)
  - Acute kidney injury [Recovered/Resolved]
  - Hepatocellular injury [Recovered/Resolved]

NARRATIVE: CASE EVENT DATE: 20170813
